FAERS Safety Report 8603467-8 (Version None)
Quarter: 2012Q3

REPORT INFORMATION
  Report Type: 
  Country: None (occurrence: None)
  Receive Date: 20120817
  Receipt Date: 20120810
  Transmission Date: 20120928
  Serious: Yes (Hospitalization, Other)
  Sender: FDA-Public Use
  Company Number: JP-PFIZER INC-2012195205

PATIENT
  Age: 79 Year
  Sex: Female

DRUGS (9)
  1. NOVORAPID [Concomitant]
     Dosage: TRIPLE SUBCUTANEOUS INJECTION
     Route: 058
  2. ASPIRIN [Concomitant]
     Dosage: UNK
  3. LASIX [Concomitant]
     Dosage: UNK
  4. LYRICA [Suspect]
     Indication: DIABETIC NEUROPATHY
     Dosage: 50 MG, 1X/DAY
     Route: 048
     Dates: start: 20110829, end: 20110904
  5. LYRICA [Suspect]
     Indication: INTERCOSTAL NEURALGIA
     Dosage: 25 MG, 1X/DAY
     Route: 048
     Dates: start: 20110905, end: 20120720
  6. TORSEMIDE [Concomitant]
     Dosage: UNK
  7. LYRICA [Suspect]
     Dosage: 50 MG, 1X/DAY
     Route: 048
     Dates: start: 20120721, end: 20120728
  8. CONIEL [Concomitant]
     Dosage: UNK
  9. NEUROTROPIN [Concomitant]
     Dosage: UNK

REACTIONS (1)
  - HYPOGLYCAEMIC COMA [None]
